FAERS Safety Report 8617053-7 (Version None)
Quarter: 2012Q3

REPORT INFORMATION
  Report Type: 
  Country: None (occurrence: None)
  Receive Date: 20120823
  Receipt Date: 20120815
  Transmission Date: 20120928
  Serious: No
  Sender: FDA-Public Use
  Company Number: US-009507513-1208USA007123

PATIENT

DRUGS (7)
  1. PRILOSEC [Concomitant]
     Route: 048
  2. JANUVIA [Suspect]
     Indication: DIABETES MELLITUS
     Dosage: 100 MG, QD
     Route: 048
     Dates: start: 20120801
  3. VYTORIN [Concomitant]
     Route: 048
  4. ZOLOFT [Concomitant]
  5. GLIMEPIRIDE [Concomitant]
  6. ZIAC [Concomitant]
  7. LYRICA [Concomitant]

REACTIONS (1)
  - HEADACHE [None]
